FAERS Safety Report 5758111-4 (Version None)
Quarter: 2008Q2

REPORT INFORMATION
  Report Type: 
  Country: None (occurrence: None)
  Receive Date: 20080530
  Receipt Date: 20080514
  Transmission Date: 20081010
  Serious: Yes (Hospitalization)
  Sender: FDA-Public Use
  Company Number: 220004L08JPN

PATIENT
  Age: 5 Year
  Sex: Male

DRUGS (1)
  1. SOMATROPIN (SOMATROPIN) [Suspect]
     Indication: GROWTH HORMONE DEFICIENCY

REACTIONS (7)
  - CORONARY ARTERY ANEURYSM [None]
  - HEPATIC FUNCTION ABNORMAL [None]
  - INFLAMMATION [None]
  - KAWASAKI'S DISEASE [None]
  - OCULAR HYPERAEMIA [None]
  - STRAWBERRY TONGUE [None]
  - STREPTOCOCCAL INFECTION [None]
